FAERS Safety Report 20237191 (Version 1)
Quarter: 2021Q4

REPORT INFORMATION
  Report Type: Spontaneous
  Country: GB (occurrence: GB)
  Receive Date: 20211228
  Receipt Date: 20211228
  Transmission Date: 20220303
  Serious: Yes (Life-Threatening, Hospitalization, Other)
  Sender: FDA-Public Use
  Company Number: None

PATIENT
  Age: 78 Year
  Sex: Female

DRUGS (11)
  1. FUROSEMIDE [Interacting]
     Active Substance: FUROSEMIDE
     Dosage: MORNING
     Route: 048
  2. OMEPRAZOLE [Interacting]
     Active Substance: OMEPRAZOLE
     Dosage: 2 SEPARATED DOSES
     Route: 048
  3. ATORVASTATIN CALCIUM [Concomitant]
     Active Substance: ATORVASTATIN CALCIUM
     Dosage: EACH NIGHT, CONTINUED
  4. DAPAGLIFLOZIN [Concomitant]
     Active Substance: DAPAGLIFLOZIN
     Dosage: EACH MORNING, CONTINUED
  5. ENALAPRIL [Concomitant]
     Active Substance: ENALAPRIL
     Dosage: EACH MORNING, CONTINUED
  6. LANTUS [Concomitant]
     Active Substance: INSULIN GLARGINE
     Dosage: EACH MORNING,100IU/ML, DRUG CONTINUED. 3ML PEN
  7. LATANOPROST [Concomitant]
     Active Substance: LATANOPROST
     Indication: Glaucoma
     Dosage: AT NIGHT, CONTINUED, 50MCG/ML.
  8. LEVOTHYROXINE SODIUM [Concomitant]
     Active Substance: LEVOTHYROXINE SODIUM
     Dosage: 50MCG AND 100MCG, 1 EACH MORNING, CONTINUED.
  9. METFORMIN [Concomitant]
     Active Substance: METFORMIN HYDROCHLORIDE
     Dosage: HOSPITAL INITIATED. PREVIOUSLY ON 850MG 3 TIMES A DAY. 2 SEPARATED DOSES
  10. BISOPROLOL [Concomitant]
     Active Substance: BISOPROLOL
     Dosage: EACH MORNING, CONTINUED
  11. LANSOPRAZOLE [Suspect]
     Active Substance: LANSOPRAZOLE
     Dosage: 30MG ONCE A DAY
     Dates: start: 2019

REACTIONS (6)
  - Atrioventricular block complete [Recovered/Resolved]
  - Hypomagnesaemia [Recovered/Resolved]
  - Hypocalcaemia [Recovering/Resolving]
  - Cardiac failure [Unknown]
  - Left ventricular dysfunction [Unknown]
  - Drug interaction [Unknown]

NARRATIVE: CASE EVENT DATE: 20190501
